FAERS Safety Report 21603037 (Version 1)
Quarter: 2022Q4

REPORT INFORMATION
  Report Type: Spontaneous
  Country: US (occurrence: US)
  Receive Date: 20221116
  Receipt Date: 20221116
  Transmission Date: 20230112
  Serious: No
  Sender: FDA-Public Use
  Company Number: US-PERRIGO-21US029754

PATIENT
  Sex: Male
  Weight: 95.238 kg

DRUGS (5)
  1. POLYETHYLENE GLYCOL 3350 [Suspect]
     Active Substance: POLYETHYLENE GLYCOL 3350
     Indication: Prophylaxis
     Dosage: ROUGHLY A CAPFUL, QD
     Route: 048
     Dates: start: 2016, end: 202109
  2. POLYETHYLENE GLYCOL 3350 [Suspect]
     Active Substance: POLYETHYLENE GLYCOL 3350
     Dosage: ROUGHLY A CAPFUL, QD
     Route: 048
     Dates: start: 202110, end: 202110
  3. SIMVASTATIN [Concomitant]
     Active Substance: SIMVASTATIN
     Indication: Blood cholesterol
     Dosage: UNK
     Route: 065
     Dates: start: 2011
  4. HYDROCHLOROTHIAZIDE [Concomitant]
     Active Substance: HYDROCHLOROTHIAZIDE
     Indication: Anticoagulant therapy
     Dosage: UNK
     Route: 065
     Dates: start: 2011
  5. LISINOPRIL [Concomitant]
     Active Substance: LISINOPRIL
     Indication: Anticoagulant therapy
     Dosage: UNK
     Route: 065
     Dates: start: 2011

REACTIONS (4)
  - Diarrhoea [Recovering/Resolving]
  - Incorrect product administration duration [Recovered/Resolved]
  - Wrong technique in product usage process [Recovered/Resolved]
  - Off label use [Recovered/Resolved]

NARRATIVE: CASE EVENT DATE: 20160101
